FAERS Safety Report 11460234 (Version 3)
Quarter: 2015Q3

REPORT INFORMATION
  Report Type: Spontaneous
  Country: JP (occurrence: JP)
  Receive Date: 20150904
  Receipt Date: 20150918
  Transmission Date: 20151125
  Serious: Yes (Hospitalization, Other)
  Sender: FDA-Public Use
  Company Number: JP-GLAXOSMITHKLINE-JP2015GSK126395

PATIENT
  Age: 9 Year
  Sex: Female

DRUGS (17)
  1. CICLOSPORIN [Suspect]
     Active Substance: CYCLOSPORINE
     Dosage: 0.5 MG/KG, CYC, ON DAY 41,DOSE DECREASED
     Route: 048
  2. DASATINIB HYDRATE [Concomitant]
     Indication: ACUTE LYMPHOCYTIC LEUKAEMIA
     Dosage: UNK, DOSE REDUCED
     Route: 065
  3. DASATINIB HYDRATE [Concomitant]
     Dosage: UNK DOSE REDUCED
     Route: 065
  4. DOXORUBICIN [Concomitant]
     Active Substance: DOXORUBICIN
  5. ACICLOVIR [Concomitant]
     Active Substance: ACYCLOVIR
     Indication: GRAFT VERSUS HOST DISEASE
  6. CICLOSPORIN [Suspect]
     Active Substance: CYCLOSPORINE
     Indication: GRAFT VERSUS HOST DISEASE
     Dosage: 1.5 TO 2 MG/KG, UNK, CYC, CONCENTRATION WAS 50 TO 100 NG/ML
     Route: 042
  7. IMATINIB [Suspect]
     Active Substance: IMATINIB
     Indication: ACUTE LYMPHOCYTIC LEUKAEMIA
     Dosage: UNK MG/M2, QD, ON DAY 32 POST TRANSPLANT
  8. ETOPOSIDE. [Concomitant]
     Active Substance: ETOPOSIDE
     Indication: ACUTE LYMPHOCYTIC LEUKAEMIA
     Dosage: 60 MG/KG, CYC
     Route: 065
  9. ONDANSETRON HCL [Suspect]
     Active Substance: ONDANSETRON HYDROCHLORIDE
     Indication: PRODUCT USED FOR UNKNOWN INDICATION
     Dosage: UNK
  10. DEXAMETHASONE. [Concomitant]
     Active Substance: DEXAMETHASONE
  11. METHOTREXATE [Concomitant]
     Active Substance: METHOTREXATE
  12. AMPHOTERICIN B. [Concomitant]
     Active Substance: AMPHOTERICIN B
     Indication: GRAFT VERSUS HOST DISEASE
  13. IMATINIB [Suspect]
     Active Substance: IMATINIB
     Dosage: 360 MG/M2, 1D
  14. VINCRISTINE SULFATE. [Concomitant]
     Active Substance: VINCRISTINE SULFATE
  15. CYTARABINE. [Concomitant]
     Active Substance: CYTARABINE
  16. SULFAMETHOXAZOLE-TRIMETHOPRIM (SMZ) [Concomitant]
     Active Substance: SULFAMETHOXAZOLE\TRIMETHOPRIM
     Indication: GRAFT VERSUS HOST DISEASE
  17. CYCLOPHOSPHAMIDE. [Concomitant]
     Active Substance: CYCLOPHOSPHAMIDE
     Indication: ACUTE LYMPHOCYTIC LEUKAEMIA
     Dosage: 120 MG/KG, CYC
     Route: 065

REACTIONS (8)
  - Bilirubin conjugated increased [Unknown]
  - Drug-induced liver injury [Recovered/Resolved]
  - Liver disorder [Unknown]
  - Oedema [Unknown]
  - Blood bilirubin increased [Unknown]
  - Hepatic enzyme increased [Recovered/Resolved]
  - Hepatomegaly [Recovered/Resolved]
  - Liver injury [Recovered/Resolved]
